FAERS Safety Report 4501986-7 (Version None)
Quarter: 2004Q4

REPORT INFORMATION
  Report Type: 
  Country: None (occurrence: None)
  Receive Date: 20041115
  Receipt Date: 20041115
  Transmission Date: 20050328
  Serious: Yes (Disabling)
  Sender: FDA-Public Use
  Company Number: None

PATIENT
  Sex: Female
  Weight: 58.9676 kg

DRUGS (3)
  1. VIOXX [Suspect]
     Indication: ARTHRITIS
     Dosage: 25 MC, DAILY,ORAL
     Route: 048
     Dates: start: 20010901
  2. VIOXX [Suspect]
     Indication: ARTHRITIS
     Dosage: 25 MC, DAILY,ORAL
     Route: 048
     Dates: start: 20040901
  3. DEMULEN 1/35-21 [Concomitant]

REACTIONS (21)
  - ABNORMAL BEHAVIOUR [None]
  - ACTIVITIES OF DAILY LIVING IMPAIRED [None]
  - ALOPECIA [None]
  - ASTHENIA [None]
  - CONVULSION [None]
  - DEPRESSED LEVEL OF CONSCIOUSNESS [None]
  - DISTURBANCE IN ATTENTION [None]
  - FATIGUE [None]
  - FIBROMYALGIA [None]
  - HAEMORRHAGE [None]
  - HYPERAESTHESIA [None]
  - HYPOAESTHESIA [None]
  - MEMORY IMPAIRMENT [None]
  - MENTAL IMPAIRMENT [None]
  - MUSCLE CRAMP [None]
  - MUSCLE SPASMS [None]
  - MUSCLE TIGHTNESS [None]
  - MUSCLE TWITCHING [None]
  - MYALGIA [None]
  - NERVOUS SYSTEM DISORDER [None]
  - THINKING ABNORMAL [None]
